FAERS Safety Report 9156067 (Version 2)
Quarter: 2013Q2

REPORT INFORMATION
  Report Type: Spontaneous
  Country: DE (occurrence: DE)
  Receive Date: 20130311
  Receipt Date: 20130410
  Transmission Date: 20140414
  Serious: Yes (Death, Hospitalization)
  Sender: FDA-Public Use
  Company Number: DE-ACTELION-A-CH2013-80249

PATIENT
  Age: 78 Year
  Sex: Female

DRUGS (1)
  1. TRACLEER [Suspect]
     Indication: PULMONARY ARTERIAL HYPERTENSION
     Route: 048

REACTIONS (12)
  - Cor pulmonale [Fatal]
  - Condition aggravated [Fatal]
  - Atrial fibrillation [Fatal]
  - General physical health deterioration [Unknown]
  - Communication disorder [Unknown]
  - Asthenia [Unknown]
  - Tachycardia [Fatal]
  - Dyspnoea [Fatal]
  - Cyanosis [Fatal]
  - Oxygen saturation decreased [Fatal]
  - Hypernatraemia [Unknown]
  - Inflammatory marker increased [Unknown]
